FAERS Safety Report 6184268-X (Version None)
Quarter: 2009Q2

REPORT INFORMATION
  Report Type: 
  Country: None (occurrence: None)
  Receive Date: 20090501
  Receipt Date: 20090320
  Transmission Date: 20091009
  Serious: Yes (Hospitalization)
  Sender: FDA-Public Use
  Company Number: 188640USA

PATIENT
  Age: 73 Year
  Sex: Female
  Weight: 58.0604 kg

DRUGS (7)
  1. PRAVASTATIN [Suspect]
     Dosage: 20 MG
     Dates: start: 20081101
  2. WARFARIN SODIUM [Concomitant]
  3. ESOMEPRAZOLE MAGNESIUM [Concomitant]
  4. PROPRANOLOL HYDROCHLORIDE [Concomitant]
  5. ACETYLSALICYLIC ACID SRT [Concomitant]
  6. CALCIUM [Concomitant]
  7. MULTI-VITAMIN [Concomitant]

REACTIONS (2)
  - DIZZINESS [None]
  - PAIN IN EXTREMITY [None]
